FAERS Safety Report 9213553 (Version 2)
Quarter: 2013Q4

REPORT INFORMATION
  Report Type: Spontaneous
  Country: US (occurrence: US)
  Receive Date: 20130405
  Receipt Date: 20131223
  Transmission Date: 20140711
  Serious: Yes (Other)
  Sender: FDA-Public Use
  Company Number: US-BAYER-2013-040244

PATIENT
  Age: 33 Year
  Sex: Female

DRUGS (8)
  1. YAZ [Suspect]
     Dosage: UNK
     Dates: start: 2005
  2. YASMIN [Suspect]
     Dosage: UNK
     Dates: start: 2005
  3. CETIRIZINE HYDROCHLORIDE [Concomitant]
     Dosage: UNK
  4. COLCHICINE [Concomitant]
     Dosage: 0.6 MG, UNK
  5. HYDROXYCHLOROQUINE [Concomitant]
     Dosage: 200 MG, UNK
  6. METOPROLOL [Concomitant]
     Dosage: 100 MG, TWO TIMES EACH DAY
     Route: 048
  7. PROMETHAZINE [Concomitant]
     Indication: NAUSEA
     Dosage: 25 MG EVERY 4 HR (HOURS) PRN (AS NEEDED)
     Route: 048
  8. PYRIDOSTIGMINE [Concomitant]
     Dosage: 60 MG, UNK

REACTIONS (6)
  - Gallbladder injury [None]
  - Cholelithiasis [None]
  - Pain [None]
  - Fear of disease [None]
  - Injury [None]
  - Pain [None]
